FAERS Safety Report 16838952 (Version 1)
Quarter: 2019Q3

REPORT INFORMATION
  Report Type: Spontaneous
  Country: US (occurrence: US)
  Receive Date: 20190923
  Receipt Date: 20190923
  Transmission Date: 20191005
  Serious: No
  Sender: FDA-Public Use
  Company Number: US-ELI_LILLY_AND_COMPANY-US201909010350

PATIENT
  Sex: Female

DRUGS (1)
  1. EMGALITY [Suspect]
     Active Substance: GALCANEZUMAB-GNLM
     Indication: MIGRAINE
     Dosage: UNK
     Route: 065
     Dates: start: 201905

REACTIONS (7)
  - Injection site warmth [Unknown]
  - Injection site bruising [Not Recovered/Not Resolved]
  - Injection site warmth [Recovered/Resolved]
  - Injection site swelling [Unknown]
  - Injection site swelling [Recovered/Resolved]
  - Injection site pruritus [Recovered/Resolved]
  - Injection site pruritus [Unknown]

NARRATIVE: CASE EVENT DATE: 201908
